FAERS Safety Report 7108551-6 (Version None)
Quarter: 2010Q4

REPORT INFORMATION
  Report Type: 
  Country: None (occurrence: None)
  Receive Date: 20101117
  Receipt Date: 20100917
  Transmission Date: 20110411
  Serious: No
  Sender: FDA-Public Use
  Company Number: A0878766A

PATIENT
  Sex: Female

DRUGS (2)
  1. VOTRIENT [Suspect]
     Indication: PRODUCT USED FOR UNKNOWN INDICATION
     Dosage: 800MG PER DAY
     Route: 048
     Dates: start: 20100706
  2. UNKNOWN ANTIEMETIC [Suspect]

REACTIONS (7)
  - ALOPECIA [None]
  - CONDITION AGGRAVATED [None]
  - DECREASED APPETITE [None]
  - DRUG ADMINISTRATION ERROR [None]
  - FATIGUE [None]
  - NAUSEA [None]
  - VOMITING [None]
